FAERS Safety Report 9387108 (Version 3)
Quarter: 2013Q4

REPORT INFORMATION
  Report Type: Report from Study
  Country: JP (occurrence: JP)
  Receive Date: 20130708
  Receipt Date: 20131030
  Transmission Date: 20140711
  Serious: Yes (Other)
  Sender: FDA-Public Use
  Company Number: JP-ROCHE-1246015

PATIENT
  Age: 60 Year
  Sex: Male

DRUGS (4)
  1. RANIBIZUMAB [Suspect]
     Indication: AGE-RELATED MACULAR DEGENERATION
     Route: 050
     Dates: start: 20110620
  2. RANIBIZUMAB [Suspect]
     Route: 050
     Dates: start: 20110801
  3. VIGAMOX [Concomitant]
     Indication: DIABETIC RETINOPATHY
     Route: 065
     Dates: start: 201106, end: 201108
  4. DUOTRAV [Concomitant]
     Indication: DIABETIC RETINOPATHY
     Route: 065
     Dates: start: 20110411, end: 20110717

REACTIONS (1)
  - Retinal haemorrhage [Recovering/Resolving]
